FAERS Safety Report 12442392 (Version 1)
Quarter: 2016Q2

REPORT INFORMATION
  Report Type: Spontaneous
  Country: ES (occurrence: ES)
  Receive Date: 20160607
  Receipt Date: 20160607
  Transmission Date: 20160815
  Serious: Yes (Other)
  Sender: FDA-Public Use
  Company Number: ES-PFIZER INC-2016282550

PATIENT
  Age: 46 Year
  Sex: Female

DRUGS (2)
  1. IMUREL /00001501/ [Interacting]
     Active Substance: AZATHIOPRINE SODIUM
     Indication: PEMPHIGUS
     Route: 048
     Dates: start: 201605, end: 20160511
  2. SALAZOPYRINA [Suspect]
     Active Substance: SULFASALAZINE
     Indication: ANKYLOSING SPONDYLITIS
     Route: 048
     Dates: start: 2016, end: 20160511

REACTIONS (3)
  - Drug interaction [Unknown]
  - Neutropenia [Unknown]
  - Medication monitoring error [Recovered/Resolved]

NARRATIVE: CASE EVENT DATE: 201605
